FAERS Safety Report 21138053 (Version 1)
Quarter: 2022Q3

REPORT INFORMATION
  Report Type: Report from Study
  Country: US (occurrence: US)
  Receive Date: 20220727
  Receipt Date: 20220727
  Transmission Date: 20221027
  Serious: Yes (Hospitalization, Other)
  Sender: FDA-Public Use
  Company Number: US-GLAXOSMITHKLINE-US2022AMR096140

PATIENT

DRUGS (2)
  1. NIRAPARIB [Suspect]
     Active Substance: NIRAPARIB
     Indication: Genital neoplasm malignant female
     Dosage: 200 MG, QD
     Route: 048
     Dates: start: 202010
  2. NIRAPARIB [Suspect]
     Active Substance: NIRAPARIB
     Indication: Ovarian cancer
     Dosage: 200 MG, QD

REACTIONS (5)
  - Gallbladder operation [Recovered/Resolved]
  - Malignant neoplasm progression [Unknown]
  - Colonoscopy [Unknown]
  - Liver operation [Recovered/Resolved]
  - Diaphragm neoplasm [Not Recovered/Not Resolved]
